FAERS Safety Report 11090060 (Version 2)
Quarter: 2015Q2

REPORT INFORMATION
  Report Type: Spontaneous
  Country: US (occurrence: US)
  Receive Date: 20150505
  Receipt Date: 20150604
  Transmission Date: 20150821
  Serious: Yes (Hospitalization, Other)
  Sender: FDA-Public Use
  Company Number: US-BAYER-2015-171263

PATIENT
  Age: 30 Year
  Sex: Female
  Weight: 95.24 kg

DRUGS (5)
  1. CALCITRATE [CALCIUM] [Concomitant]
  2. VITAMIN D [COLECALCIFEROL] [Concomitant]
  3. SERTRALINE [Concomitant]
     Active Substance: SERTRALINE HYDROCHLORIDE
     Indication: DEPRESSION
     Dosage: UNK
     Dates: start: 2003
  4. MIRENA [Suspect]
     Active Substance: LEVONORGESTREL
     Indication: CONTRACEPTION
     Dosage: 20 MCG/24HR, CONT
     Route: 015
     Dates: start: 20140613, end: 20141017
  5. KARIVA [Concomitant]
     Active Substance: DESOGESTREL\ETHINYL ESTRADIOL
     Dosage: UNK
     Dates: start: 2006, end: 2014

REACTIONS (12)
  - Genital haemorrhage [None]
  - Anxiety [None]
  - Wound infection [None]
  - Seroma [None]
  - Anhedonia [None]
  - Emotional distress [None]
  - Uterine perforation [None]
  - Necrosis [None]
  - Haematoma [None]
  - Wound dehiscence [None]
  - Injury [None]
  - Pain [None]

NARRATIVE: CASE EVENT DATE: 201406
